FAERS Safety Report 20646655 (Version 3)
Quarter: 2024Q4

REPORT INFORMATION
  Report Type: Report from Study
  Country: IE (occurrence: IE)
  Receive Date: 20220329
  Receipt Date: 20241106
  Transmission Date: 20250114
  Serious: Yes (Other)
  Sender: NOVARTIS
  Company Number: IE-NOVARTISPH-NVSC2022IE065797

PATIENT
  Age: 77 Year
  Sex: Male

DRUGS (2)
  1. COSENTYX [Suspect]
     Active Substance: SECUKINUMAB
     Indication: Psoriasis
     Dosage: UNK
     Route: 065
  2. COSENTYX [Suspect]
     Active Substance: SECUKINUMAB
     Dosage: 300 MG
     Route: 065

REACTIONS (4)
  - Skin cancer [Unknown]
  - Mean cell haemoglobin increased [Unknown]
  - Monocyte count abnormal [Unknown]
  - Blood albumin abnormal [Unknown]
